FAERS Safety Report 4954507-9 (Version None)
Quarter: 2006Q1

REPORT INFORMATION
  Report Type: 
  Country: None (occurrence: None)
  Receive Date: 20060322
  Receipt Date: 20060306
  Transmission Date: 20060701
  Serious: Yes (Hospitalization)
  Sender: FDA-Public Use
  Company Number: 2006EU000366

PATIENT
  Age: 45 Year
  Sex: Female

DRUGS (4)
  1. FK506 (TACROLIMUS) CAPSULE [Suspect]
     Indication: RENAL TRANSPLANT
     Dosage: 4 MG, ORAL
     Route: 048
     Dates: start: 20040728
  2. MYCOPHENOLATE MOFETIL [Suspect]
     Indication: RENAL TRANSPLANT
     Dosage: 2 G, UID/QD, ORAL
     Route: 048
     Dates: start: 20040728
  3. DACLIZUMAB (DACLIZUMAB) [Suspect]
     Indication: RENAL TRANSPLANT
     Dosage: 2 MG/KG, IV NOS
     Route: 042
     Dates: start: 20040725, end: 20040921
  4. PREDNISONE TAB [Suspect]
     Indication: RENAL TRANSPLANT
     Dosage: 7.5 MG, UID/QD, ORAL
     Route: 048
     Dates: start: 20040729

REACTIONS (2)
  - DISEASE RECURRENCE [None]
  - GLOMERULONEPHRITIS [None]
